FAERS Safety Report 8177657-5 (Version None)
Quarter: 2012Q1

REPORT INFORMATION
  Report Type: 
  Country: None (occurrence: None)
  Receive Date: 20120301
  Receipt Date: 20120224
  Transmission Date: 20120608
  Serious: Yes (Other)
  Sender: FDA-Public Use
  Company Number: PHEH2012US004791

PATIENT
  Sex: Female

DRUGS (2)
  1. TEKTURNA [Suspect]
  2. VALTURNA [Suspect]

REACTIONS (2)
  - LIMB DISCOMFORT [None]
  - INFECTION [None]
